FAERS Safety Report 8756581 (Version 2)
Quarter: 2012Q4

REPORT INFORMATION
  Report Type: Spontaneous
  Country: GB (occurrence: None)
  Receive Date: 20120814
  Receipt Date: 20121009
  Transmission Date: 20130627
  Serious: Yes (Death)
  Sender: FDA-Public Use
  Company Number: UTC-021672

PATIENT
  Age: 28 Year
  Sex: Female

DRUGS (8)
  1. REMODULIN (10 MILLIGRAM/MILLILITERS, INJECTION FOR INFUSION) (TREPROSTINIL SODIUM) [Suspect]
     Dosage: 172.8 ug/kg (0.12 ug/kg, 1 in 1 min), Subcutaneous
     Route: 058
     Dates: start: 20071206
  2. ESOMEPRAZOLE [Concomitant]
  3. BUMETANIDE [Concomitant]
  4. AMILORIDE [Concomitant]
  5. BOSENTAN [Concomitant]
  6. SILDENAFIL [Concomitant]
  7. CERAZETTE (DESOGESTREL) (TABLET) [Concomitant]
  8. IMPLANON (ETONOGESTREL) [Concomitant]

REACTIONS (8)
  - Sepsis [None]
  - Pulmonary hypertension [None]
  - Acidosis [None]
  - Pulseless electrical activity [None]
  - Multi-organ failure [None]
  - Hepatic function abnormal [None]
  - Renal impairment [None]
  - Acne [None]
